FAERS Safety Report 7944471-2 (Version None)
Quarter: 2011Q4

REPORT INFORMATION
  Report Type: 
  Country: None (occurrence: None)
  Receive Date: 20111122
  Receipt Date: 20110701
  Transmission Date: 20120403
  Serious: No
  Sender: FDA-Public Use
  Company Number: PHHY2011US59669

PATIENT
  Age: 49 Year
  Sex: Female

DRUGS (9)
  1. PRIMIDONE [Concomitant]
  2. LOVAZA [Concomitant]
  3. CITRACAL + D (CALCIUM CITRATE, ERGOCALCIFEROL) [Concomitant]
  4. TIZANIDINE HCL [Concomitant]
  5. GILENYA [Suspect]
     Indication: MULTIPLE SCLEROSIS
     Dosage: 0.5 MG, QD, ORAL
     Route: 048
     Dates: start: 20110620
  6. BACLOFEN [Concomitant]
  7. PROVIGIL [Concomitant]
  8. PRAVACHOL [Concomitant]
  9. VITAMIN D [Concomitant]

REACTIONS (2)
  - MUSCLE TIGHTNESS [None]
  - BACK PAIN [None]
